FAERS Safety Report 22645511 (Version 1)
Quarter: 2023Q2

REPORT INFORMATION
  Report Type: Spontaneous
  Country: FR (occurrence: FR)
  Receive Date: 20230627
  Receipt Date: 20230627
  Transmission Date: 20230721
  Serious: Yes (Death)
  Sender: FDA-Public Use
  Company Number: FR-AFSSAPS-TS2023000372

PATIENT
  Age: 65 Year
  Sex: Female

DRUGS (2)
  1. MORPHINE [Suspect]
     Active Substance: MORPHINE
     Indication: Abdominal pain upper
     Dosage: 3 MILLIGRAM, IN TOTAL
     Route: 058
     Dates: start: 20230313, end: 20230313
  2. SOLUPRED [Concomitant]
     Indication: Palliative care
     Dosage: 30 MILLIGRAM, DAILY
     Route: 048

REACTIONS (1)
  - Cardio-respiratory arrest [Fatal]

NARRATIVE: CASE EVENT DATE: 20230313
